FAERS Safety Report 6978725-3 (Version None)
Quarter: 2010Q3

REPORT INFORMATION
  Report Type: 
  Country: None (occurrence: None)
  Receive Date: 20100913
  Receipt Date: 20100902
  Transmission Date: 20110219
  Serious: Yes (Other)
  Sender: FDA-Public Use
  Company Number: B0673937A

PATIENT
  Sex: Female

DRUGS (1)
  1. AUGMENTIN '125' [Suspect]
     Indication: PRODUCT USED FOR UNKNOWN INDICATION
     Dosage: 625MG TWICE PER DAY
     Dates: start: 20100727, end: 20100731

REACTIONS (3)
  - DIARRHOEA [None]
  - PSEUDOMEMBRANOUS COLITIS [None]
  - SURGERY [None]
